FAERS Safety Report 18663981 (Version 1)
Quarter: 2020Q4

REPORT INFORMATION
  Report Type: Spontaneous
  Country: JP (occurrence: JP)
  Receive Date: 20201224
  Receipt Date: 20201224
  Transmission Date: 20210114
  Serious: Yes (Other)
  Sender: FDA-Public Use
  Company Number: JP-B.I. PHARMACEUTICALS,INC./RIDGEFIELD-2020-BI-071276

PATIENT
  Age: 70 Year
  Sex: Female

DRUGS (9)
  1. GILOTRIF [Suspect]
     Active Substance: AFATINIB
     Indication: NEUROENDOCRINE CARCINOMA
     Route: 065
  2. GILOTRIF [Suspect]
     Active Substance: AFATINIB
     Indication: ADENOCARCINOMA
  3. VINORELBINE [Concomitant]
     Active Substance: VINORELBINE TARTRATE
     Indication: NEUROENDOCRINE CARCINOMA
     Route: 065
  4. VINORELBINE [Concomitant]
     Active Substance: VINORELBINE TARTRATE
     Indication: EGFR GENE MUTATION
  5. VINORELBINE [Concomitant]
     Active Substance: VINORELBINE TARTRATE
     Indication: ADENOCARCINOMA
  6. GILOTRIF [Suspect]
     Active Substance: AFATINIB
     Indication: EGFR GENE MUTATION
  7. CISPLATIN. [Concomitant]
     Active Substance: CISPLATIN
     Indication: NEUROENDOCRINE CARCINOMA
     Route: 065
  8. CISPLATIN. [Concomitant]
     Active Substance: CISPLATIN
     Indication: EGFR GENE MUTATION
  9. CISPLATIN. [Concomitant]
     Active Substance: CISPLATIN
     Indication: ADENOCARCINOMA

REACTIONS (7)
  - Decreased appetite [Unknown]
  - Hypertension [Unknown]
  - Monoplegia [Recovering/Resolving]
  - Brain oedema [Unknown]
  - Central nervous system lesion [Unknown]
  - Paronychia [Unknown]
  - Dermatitis acneiform [Unknown]
